FAERS Safety Report 12992516 (Version 2)
Quarter: 2017Q1

REPORT INFORMATION
  Report Type: Spontaneous
  Country: JP (occurrence: JP)
  Receive Date: 20161202
  Receipt Date: 20170127
  Transmission Date: 20170428
  Serious: Yes (Death, Life-Threatening)
  Sender: FDA-Public Use
  Company Number: JP-SUN PHARMACEUTICAL INDUSTRIES LTD-2016RR-128613

PATIENT
  Age: 83 Year
  Sex: Female
  Weight: 40.4 kg

DRUGS (8)
  1. CALCIUM FOLINAT [Suspect]
     Active Substance: LEUCOVORIN CALCIUM
     Indication: METASTASES TO PERITONEUM
     Dosage: FOLFIRI DOSE WAS REDUCED TO 70%
     Route: 065
  2. FLUOROURACIL. [Suspect]
     Active Substance: FLUOROURACIL
     Indication: COLON CANCER STAGE IV
     Dosage: FOLFIRI DOSE WAS REDUCED TO 70%
     Route: 065
  3. IRINOTECAN [Suspect]
     Active Substance: IRINOTECAN
     Indication: METASTASES TO PERITONEUM
     Dosage: FOLFIRI DOSE WAS REDUCED TO 70%
     Route: 065
  4. IRINOTECAN [Suspect]
     Active Substance: IRINOTECAN
     Indication: COLON CANCER STAGE IV
     Dosage: FOLFIRI DOSE WAS REDUCED TO 70%
     Route: 065
  5. CETUXIMAB. [Suspect]
     Active Substance: CETUXIMAB
     Indication: COLON CANCER STAGE IV
     Dosage: 10 MG/KG, 400 MG/BODY FOR USE AT INTERVALS OF 2 WEEKS
     Route: 065
  6. CETUXIMAB. [Suspect]
     Active Substance: CETUXIMAB
     Indication: METASTASES TO PERITONEUM
     Dosage: 10 MG/KG, 400 MG/BODY FOR USE AT INTERVALS OF 2 WEEKS
     Route: 065
  7. CALCIUM FOLINAT [Suspect]
     Active Substance: LEUCOVORIN CALCIUM
     Indication: COLON CANCER STAGE IV
     Dosage: FOLFIRI DOSE WAS REDUCED TO 70%
     Route: 065
  8. FLUOROURACIL. [Suspect]
     Active Substance: FLUOROURACIL
     Indication: METASTASES TO PERITONEUM
     Dosage: FOLFIRI DOSE WAS REDUCED TO 70%
     Route: 065

REACTIONS (7)
  - Multiple organ dysfunction syndrome [Fatal]
  - Shock [Unknown]
  - Pulmonary oedema [Unknown]
  - Tumour lysis syndrome [Recovering/Resolving]
  - Pneumonia aspiration [Not Recovered/Not Resolved]
  - Ileus [Recovering/Resolving]
  - Renal impairment [Unknown]
